FAERS Safety Report 7828578-6 (Version None)
Quarter: 2011Q4

REPORT INFORMATION
  Report Type: 
  Country: None (occurrence: None)
  Receive Date: 20111020
  Receipt Date: 20111020
  Transmission Date: 20120403
  Serious: Yes (Other)
  Sender: FDA-Public Use
  Company Number: None

PATIENT
  Age: 69 Year
  Sex: Male
  Weight: 94.8 kg

DRUGS (3)
  1. NEULASTA [Concomitant]
  2. RITUXIMAB [Concomitant]
  3. TREANDA [Suspect]
     Indication: NON-HODGKIN'S LYMPHOMA
     Dosage: 170 TO 200 MG
     Route: 042
     Dates: start: 20101127, end: 20110227

REACTIONS (2)
  - NEUTROPENIA [None]
  - CHRONIC MYELOMONOCYTIC LEUKAEMIA [None]
